FAERS Safety Report 11973143 (Version 6)
Quarter: 2016Q2

REPORT INFORMATION
  Report Type: Spontaneous
  Country: US (occurrence: US)
  Receive Date: 20160128
  Receipt Date: 20160525
  Transmission Date: 20160815
  Serious: Yes (Hospitalization)
  Sender: FDA-Public Use
  Company Number: US-ACTELION-A-NJ2016-130569

PATIENT
  Age: 55 Year
  Sex: Male

DRUGS (3)
  1. COUMADIN [Concomitant]
     Active Substance: WARFARIN SODIUM
  2. VELETRI [Suspect]
     Active Substance: EPOPROSTENOL
     Indication: PULMONARY ARTERIAL HYPERTENSION
     Dosage: 86 NG/KG, PER MIN
     Route: 042
     Dates: start: 20110408
  3. ADCIRCA [Concomitant]
     Active Substance: TADALAFIL

REACTIONS (11)
  - Dyspnoea [Unknown]
  - Staphylococcus test positive [Recovered/Resolved]
  - Pneumonia [Unknown]
  - Rash pruritic [Unknown]
  - Blood culture positive [Recovered/Resolved]
  - White blood cell count increased [Recovered/Resolved]
  - Chills [Recovered/Resolved]
  - Device related sepsis [Recovered/Resolved]
  - Rash erythematous [Unknown]
  - Pyrexia [Recovered/Resolved]
  - Medical device change [Recovered/Resolved]

NARRATIVE: CASE EVENT DATE: 20160311
